FAERS Safety Report 11394565 (Version 1)
Quarter: 2015Q3

REPORT INFORMATION
  Report Type: Report from Study
  Country: NL (occurrence: NL)
  Receive Date: 20150819
  Receipt Date: 20150819
  Transmission Date: 20151125
  Serious: Yes (Hospitalization, Other)
  Sender: FDA-Public Use
  Company Number: PHHY2015NL087411

PATIENT
  Sex: Male

DRUGS (3)
  1. HYDROCOBAMINE [Concomitant]
     Active Substance: HYDROXOCOBALAMIN HYDROCHLORIDE
     Indication: PRODUCT USED FOR UNKNOWN INDICATION
     Dosage: 1000 MG, (1 X 2 MONTHS)
     Route: 065
  2. PARACETAMOL [Concomitant]
     Active Substance: ACETAMINOPHEN
     Indication: PRODUCT USED FOR UNKNOWN INDICATION
     Dosage: 1000 MG, BID
     Route: 065
  3. SANDOSTATIN LAR DEPOT [Suspect]
     Active Substance: OCTREOTIDE ACETATE
     Indication: PRODUCT USED FOR UNKNOWN INDICATION
     Dosage: 30MG/ 2ML, ONCE EVERY 04 WEEKS
     Route: 030

REACTIONS (7)
  - Ileus [Unknown]
  - Localised infection [Not Recovered/Not Resolved]
  - Bacteraemia [Unknown]
  - Joint dislocation pathological [Unknown]
  - Contusion [Unknown]
  - Lung disorder [Unknown]
  - Fall [Unknown]
